FAERS Safety Report 6042669-4 (Version None)
Quarter: 2009Q1

REPORT INFORMATION
  Report Type: 
  Country: None (occurrence: None)
  Receive Date: 20090119
  Receipt Date: 20090109
  Transmission Date: 20090719
  Serious: Yes (Other)
  Sender: FDA-Public Use
  Company Number: PHHY2009GB01063

PATIENT
  Sex: Male

DRUGS (1)
  1. LIORESAL [Suspect]

REACTIONS (2)
  - CHEST DISCOMFORT [None]
  - MUSCULOSKELETAL STIFFNESS [None]
